FAERS Safety Report 11298249 (Version 1)
Quarter: 2015Q3

REPORT INFORMATION
  Report Type: Spontaneous
  Country: US (occurrence: US)
  Receive Date: 20150722
  Receipt Date: 20150722
  Transmission Date: 20151125
  Serious: No
  Sender: FDA-Public Use
  Company Number: US-ELI_LILLY_AND_COMPANY-US201108000759

PATIENT
  Sex: Female

DRUGS (2)
  1. FOSAMAX [Concomitant]
     Active Substance: ALENDRONATE SODIUM
  2. EVISTA [Suspect]
     Active Substance: RALOXIFENE HYDROCHLORIDE

REACTIONS (11)
  - Rash [Unknown]
  - Micturition disorder [Unknown]
  - Bone pain [Unknown]
  - Peripheral coldness [Unknown]
  - Dehydration [Unknown]
  - Blood sodium decreased [Unknown]
  - Blood potassium decreased [Unknown]
  - Chills [Unknown]
  - Hyperhidrosis [Unknown]
  - Weight decreased [Unknown]
  - Dizziness [Unknown]
